FAERS Safety Report 8165616-8 (Version None)
Quarter: 2012Q1

REPORT INFORMATION
  Report Type: 
  Country: None (occurrence: None)
  Receive Date: 20120227
  Receipt Date: 20120216
  Transmission Date: 20120608
  Serious: Yes (Other)
  Sender: FDA-Public Use
  Company Number: US-CELGENEUS-163-20785-11122107

PATIENT
  Sex: Male

DRUGS (6)
  1. ADALIMUMAB [Concomitant]
     Route: 065
  2. THALOMID [Suspect]
     Indication: CROHN'S DISEASE
     Dosage: 50 MILLIGRAM
     Route: 048
     Dates: start: 20110316
  3. THALOMID [Suspect]
     Dosage: 150 MILLIGRAM
     Route: 048
     Dates: start: 20120101
  4. ANTI-TNF THERAPY [Concomitant]
     Route: 065
  5. THALOMID [Suspect]
     Dosage: 100 MILLIGRAM
     Route: 048
     Dates: start: 20111201
  6. MULTI-VITAMINS [Concomitant]
     Route: 065

REACTIONS (1)
  - CROHN'S DISEASE [None]
